FAERS Safety Report 13502030 (Version 11)
Quarter: 2019Q1

REPORT INFORMATION
  Report Type: Spontaneous
  Country: JP (occurrence: JP)
  Receive Date: 20170502
  Receipt Date: 20190228
  Transmission Date: 20190417
  Serious: Yes (Death, Hospitalization, Other)
  Sender: FDA-Public Use
  Company Number: JP-009507513-1704JPN002442J

PATIENT
  Age: 70 Year
  Sex: Male
  Weight: 45 kg

DRUGS (29)
  1. TRAMCET [Concomitant]
     Active Substance: ACETAMINOPHEN\TRAMADOL
     Dosage: 1 DF, TID
     Route: 048
     Dates: start: 20170228, end: 20170519
  2. METHYCOBAL [Concomitant]
     Active Substance: METHYLCOBALAMIN
     Dosage: 500 MICROGRAM, TID
     Route: 048
     Dates: start: 20170313, end: 20170519
  3. OXYCONTIN [Concomitant]
     Active Substance: OXYCODONE HYDROCHLORIDE
     Indication: ARTHRALGIA
     Dosage: 30 MG, UNK
     Route: 048
     Dates: start: 20170416, end: 20170418
  4. SOL-MELCORT [Concomitant]
     Active Substance: METHYLPREDNISOLONE SODIUM SUCCINATE
     Dosage: 500 MG, UNK
     Route: 065
     Dates: start: 20170421, end: 20170423
  5. SOL-MELCORT [Concomitant]
     Active Substance: METHYLPREDNISOLONE SODIUM SUCCINATE
     Dosage: 500 MG, UNK
     Route: 065
     Dates: start: 20170514, end: 20170516
  6. HEPARIN SODIUM. [Concomitant]
     Active Substance: HEPARIN SODIUM
     Dosage: UNK
     Route: 051
     Dates: start: 20170520
  7. PREDONINE [Concomitant]
     Active Substance: PREDNISOLONE
     Dosage: 60 MG, QD
     Route: 042
     Dates: start: 20170425, end: 20170501
  8. MEROPENEM HYDRATE [Concomitant]
     Active Substance: MEROPENEM
     Dosage: UNK
     Route: 051
     Dates: start: 20170519
  9. PREDONINE [Concomitant]
     Active Substance: PREDNISOLONE
     Dosage: 50 MG, QD
     Route: 042
     Dates: start: 20170502, end: 20170508
  10. MAINTATE [Concomitant]
     Active Substance: BISOPROLOL FUMARATE
     Dosage: 2.5 MG, QD
     Route: 048
     Dates: end: 20170519
  11. LANSOPRAZOLE OD [Concomitant]
     Active Substance: LANSOPRAZOLE
     Dosage: 15 MG, QD
     Route: 048
     Dates: start: 20170223, end: 20170519
  12. PREDNISOLONE. [Concomitant]
     Active Substance: PREDNISOLONE
     Dosage: 40 MG, UNK
     Route: 048
     Dates: start: 20170424
  13. DAIPHEN [Concomitant]
     Active Substance: SULFAMETHOXAZOLE\TRIMETHOPRIM
     Indication: INFECTION PROPHYLAXIS
     Dosage: 1 DF, QD
     Route: 048
     Dates: start: 20170515
  14. TAZOBACTAM SODIUM_PIPERACILLIN SODIUM [Concomitant]
     Dosage: UNK
     Route: 041
     Dates: start: 20170518, end: 20170518
  15. SULBACILLIN [Suspect]
     Active Substance: AMPICILLIN SODIUM\SULBACTAM SODIUM
     Dosage: UNK
     Route: 051
     Dates: start: 20170413
  16. PANVITAN [Concomitant]
     Dosage: 1 G, BID
     Route: 048
     Dates: start: 20170313, end: 20170519
  17. CEFTAZIDIME. [Concomitant]
     Active Substance: CEFTAZIDIME
     Dosage: UNK
     Route: 042
     Dates: start: 20170419
  18. DAIPHEN [Concomitant]
     Active Substance: SULFAMETHOXAZOLE\TRIMETHOPRIM
     Dosage: 9 DF, QD
     Route: 048
     Dates: start: 20170518, end: 20170520
  19. PREDONINE [Concomitant]
     Active Substance: PREDNISOLONE
     Dosage: 80 MG, QD
     Route: 048
     Dates: start: 20170520, end: 20170603
  20. AMLODIPINE [Concomitant]
     Active Substance: AMLODIPINE BESYLATE
     Dosage: 5 MG, QD
     Route: 048
     Dates: end: 20170519
  21. MORPHINE HYDROCHLORIDE HYDRATE [Concomitant]
     Active Substance: MORPHINE HYDROCHLORIDE
     Dosage: UNK
     Route: 042
     Dates: start: 20170520
  22. KEYTRUDA [Suspect]
     Active Substance: PEMBROLIZUMAB
     Indication: SQUAMOUS CELL CARCINOMA OF LUNG
     Dosage: 200 MG, Q3W
     Route: 041
     Dates: start: 20170322, end: 20170322
  23. FENTOS [Concomitant]
     Active Substance: FENTANYL
     Dosage: UNK
     Route: 062
     Dates: start: 20170419
  24. PREDONINE [Concomitant]
     Active Substance: PREDNISOLONE
     Dosage: 50 MG, UNK
     Route: 048
     Dates: start: 20170517, end: 20170519
  25. AZILVA [Concomitant]
     Active Substance: AZILSARTAN KAMEDOXOMIL
     Dosage: 40 MG, QD
     Route: 048
     Dates: end: 20170519
  26. MAGMITT [Concomitant]
     Active Substance: MAGNESIUM OXIDE
     Dosage: 250 MG, TID
     Route: 048
     Dates: start: 20170228, end: 20170519
  27. NOVAMIN [Concomitant]
     Dosage: 5 MG, TID
     Route: 048
     Dates: start: 20170228, end: 20170519
  28. CEFMETAZOLE SODIUM [Concomitant]
     Active Substance: CEFMETAZOLE SODIUM
     Dosage: UNK
     Route: 051
     Dates: start: 20170416, end: 20170418
  29. PREDONINE [Concomitant]
     Active Substance: PREDNISOLONE
     Dosage: 25 MG, UNK
     Route: 048
     Dates: start: 20170509, end: 20170513

REACTIONS (10)
  - Pneumocystis jirovecii pneumonia [Fatal]
  - Renal impairment [Not Recovered/Not Resolved]
  - Malaise [Not Recovered/Not Resolved]
  - Decreased appetite [Not Recovered/Not Resolved]
  - Pneumonia aspiration [Fatal]
  - Pneumonia bacterial [Fatal]
  - Pulmonary embolism [Fatal]
  - Rash [Unknown]
  - Interstitial lung disease [Fatal]
  - Arthralgia [Unknown]

NARRATIVE: CASE EVENT DATE: 2017
